FAERS Safety Report 7690603-3 (Version None)
Quarter: 2011Q3

REPORT INFORMATION
  Report Type: 
  Country: None (occurrence: None)
  Receive Date: 20110818
  Receipt Date: 20110808
  Transmission Date: 20111222
  Serious: Yes (Hospitalization)
  Sender: FDA-Public Use
  Company Number: FR-JNJFOC-20110804988

PATIENT
  Age: 52 Year
  Sex: Male
  Weight: 88 kg

DRUGS (9)
  1. REMICADE [Suspect]
     Route: 042
     Dates: start: 20080404
  2. REMICADE [Suspect]
     Route: 042
     Dates: start: 20060101
  3. REMICADE [Suspect]
     Dosage: 24TH INFUSION
     Route: 042
     Dates: start: 20110708
  4. REMICADE [Suspect]
     Dosage: 20TH INFUSION
     Route: 042
     Dates: start: 20101220
  5. REMICADE [Suspect]
     Dosage: 23RD INFUSION
     Route: 042
     Dates: start: 20110520
  6. REMICADE [Suspect]
     Dosage: 22ND INFUSION
     Route: 042
     Dates: start: 20110401
  7. REMICADE [Suspect]
     Indication: ANKYLOSING SPONDYLITIS
     Dosage: 21ST INFUSION
     Route: 042
     Dates: start: 20110211
  8. REMICADE [Suspect]
     Route: 042
     Dates: start: 20080804
  9. REMICADE [Suspect]
     Dosage: 19TH INFUSION
     Route: 042
     Dates: start: 20101029

REACTIONS (6)
  - SCROTAL PAIN [None]
  - ANTINUCLEAR ANTIBODY POSITIVE [None]
  - LEUKOCYTOCLASTIC VASCULITIS [None]
  - DRUG EFFECT DECREASED [None]
  - VASCULAR PURPURA [None]
  - ABDOMINAL PAIN UPPER [None]
